FAERS Safety Report 7754714-6 (Version None)
Quarter: 2011Q3

REPORT INFORMATION
  Report Type: 
  Country: None (occurrence: None)
  Receive Date: 20110915
  Receipt Date: 20110711
  Transmission Date: 20111222
  Serious: Yes (Other)
  Sender: FDA-Public Use
  Company Number: PHHY2011US61844

PATIENT
  Sex: Female

DRUGS (8)
  1. CALCIUM CARBONATE [Concomitant]
     Dosage: UNK UKN, UNK
  2. FLECAINIDE ACETATE [Concomitant]
     Dosage: UNK UKN, UNK
  3. MIACALCIN [Suspect]
     Dosage: UNK UKN, UNK
  4. SPIRONOLACTONE [Concomitant]
     Dosage: UNK UKN, UNK
  5. PROTONIX [Concomitant]
     Dosage: UNK UKN, UNK
  6. TOPROL-XL [Concomitant]
     Dosage: UNK UKN, UNK
  7. RECLAST [Suspect]
     Dosage: 5 MG
     Route: 042
     Dates: start: 20101203
  8. PLAVIX [Concomitant]
     Dosage: UNK UKN, UNK

REACTIONS (15)
  - ARTHRALGIA [None]
  - OEDEMA MOUTH [None]
  - URINARY TRACT INFECTION [None]
  - GASTRIC DILATATION [None]
  - ABDOMINAL PAIN [None]
  - DECREASED APPETITE [None]
  - NAUSEA [None]
  - ABDOMINAL DISTENSION [None]
  - BACK PAIN [None]
  - HEADACHE [None]
  - DIZZINESS [None]
  - SPINAL FRACTURE [None]
  - CONSTIPATION [None]
  - COUGH [None]
  - WEIGHT DECREASED [None]
